APPROVED DRUG PRODUCT: NITROFURANTOIN (MONOHYDRATE/MACROCRYSTALS)
Active Ingredient: NITROFURANTOIN; NITROFURANTOIN, MACROCRYSTALLINE
Strength: 75MG;25MG
Dosage Form/Route: CAPSULE;ORAL
Application: A215002 | Product #001
Applicant: ALVOGEN INC
Approved: Jul 20, 2022 | RLD: No | RS: No | Type: DISCN